FAERS Safety Report 25628405 (Version 1)
Quarter: 2025Q3

REPORT INFORMATION
  Report Type: Spontaneous
  Country: GB (occurrence: GB)
  Receive Date: 20250731
  Receipt Date: 20250731
  Transmission Date: 20251020
  Serious: Yes (Life-Threatening, Disabling, Other)
  Sender: PFIZER
  Company Number: None

PATIENT
  Age: 50 Year
  Sex: Female
  Weight: 48 kg

DRUGS (6)
  1. COMIRNATY NOS [Suspect]
     Active Substance: COVID-19 VACCINE
     Indication: COVID-19 immunisation
  2. COMIRNATY NOS [Suspect]
     Active Substance: COVID-19 VACCINE
  3. COMIRNATY NOS [Suspect]
     Active Substance: COVID-19 VACCINE
  4. METHYLPREDNISOLONE SODIUM SUCCINATE [Suspect]
     Active Substance: METHYLPREDNISOLONE SODIUM SUCCINATE
     Indication: Tenodesis
     Dates: start: 20250430
  5. OMEPRAZOLE [Concomitant]
     Active Substance: OMEPRAZOLE
     Indication: Pain in extremity
     Dates: start: 20250714
  6. NAPROXEN [Concomitant]
     Active Substance: NAPROXEN
     Indication: Pain in extremity
     Dates: start: 20250714

REACTIONS (16)
  - Hypertension [Not Recovered/Not Resolved]
  - Haematochezia [Unknown]
  - Bone pain [Unknown]
  - Muscle spasms [Unknown]
  - Hypotension [Unknown]
  - Arthralgia [Unknown]
  - Paraesthesia [Unknown]
  - Hypoaesthesia [Unknown]
  - Insomnia [Unknown]
  - Weight decreased [Unknown]
  - Dizziness [Unknown]
  - Pain in extremity [Unknown]
  - Hyperhidrosis [Unknown]
  - Asthenia [Unknown]
  - Fatigue [Unknown]
  - Decreased appetite [Unknown]

NARRATIVE: CASE EVENT DATE: 20250703
